FAERS Safety Report 16420505 (Version 1)
Quarter: 2019Q2

REPORT INFORMATION
  Report Type: Spontaneous
  Country: US (occurrence: US)
  Receive Date: 20190612
  Receipt Date: 20190612
  Transmission Date: 20190711
  Serious: No
  Sender: FDA-Public Use
  Company Number: US-PFIZER INC-2019245178

PATIENT
  Age: 59 Year
  Sex: Male
  Weight: 113.4 kg

DRUGS (1)
  1. GENOTROPIN [Suspect]
     Active Substance: SOMATROPIN
     Indication: EMPTY SELLA SYNDROME
     Dosage: 0.2 ML, 1X/DAY
     Dates: start: 2009

REACTIONS (1)
  - Fatigue [Unknown]
